FAERS Safety Report 7679374-4 (Version None)
Quarter: 2011Q3

REPORT INFORMATION
  Report Type: 
  Country: None (occurrence: None)
  Receive Date: 20110812
  Receipt Date: 20110801
  Transmission Date: 20111222
  Serious: Yes (Hospitalization)
  Sender: FDA-Public Use
  Company Number: US-JNJFOC-20060101073

PATIENT
  Sex: Male
  Weight: 59 kg

DRUGS (9)
  1. PREDNISONE [Concomitant]
  2. PREDNISONE [Concomitant]
  3. INFLIXIMAB [Suspect]
     Dosage: TOTAL 6 DOSES RECEIVED
     Route: 042
     Dates: start: 20040206, end: 20040823
  4. GENTAMYCIN SULFATE [Concomitant]
  5. INFLIXIMAB [Suspect]
     Indication: CROHN'S DISEASE
     Dosage: TREATMENT OF ACTIVE INFLAMMATORY DISEASE
     Route: 042
     Dates: start: 20051115
  6. METRONIDAZOLE [Concomitant]
  7. AMPICILLIN SODIUM [Concomitant]
  8. SOLU-MEDROL [Concomitant]
  9. IMURAN [Concomitant]

REACTIONS (5)
  - SEPSIS [None]
  - ABDOMINAL DISTENSION [None]
  - CROHN'S DISEASE [None]
  - ABDOMINAL WALL ABSCESS [None]
  - DISSEMINATED INTRAVASCULAR COAGULATION [None]
